FAERS Safety Report 16979458 (Version 1)
Quarter: 2019Q4

REPORT INFORMATION
  Report Type: Spontaneous
  Country: FR (occurrence: FR)
  Receive Date: 20191031
  Receipt Date: 20191031
  Transmission Date: 20200122
  Serious: Yes (Hospitalization, Other)
  Sender: FDA-Public Use
  Company Number: FR-PFIZER INC-2019464117

PATIENT
  Age: 15 Year
  Sex: Female
  Weight: 45 kg

DRUGS (3)
  1. ALPRAZOLAM. [Suspect]
     Active Substance: ALPRAZOLAM
     Indication: SUICIDE ATTEMPT
     Dosage: 20 MG, SINGLE
     Route: 048
     Dates: start: 20190915, end: 20190915
  2. FLUOXETINE HYDROCHLORIDE. [Suspect]
     Active Substance: FLUOXETINE HYDROCHLORIDE
     Indication: SUICIDE ATTEMPT
     Dosage: 40 MG, SINGLE
     Route: 048
     Dates: start: 20190915, end: 20190915
  3. PARACETAMOL [Suspect]
     Active Substance: ACETAMINOPHEN
     Indication: SUICIDE ATTEMPT
     Dosage: 2 G, SINGLE
     Route: 048
     Dates: start: 20190915, end: 20190915

REACTIONS (3)
  - Suicide attempt [Unknown]
  - Depressed level of consciousness [Recovered/Resolved]
  - Intentional product misuse [Unknown]

NARRATIVE: CASE EVENT DATE: 20190915
